FAERS Safety Report 9221947 (Version 1)
Quarter: 2013Q2

REPORT INFORMATION
  Report Type: Spontaneous
  Country: US (occurrence: None)
  Receive Date: 20130410
  Receipt Date: 20130410
  Transmission Date: 20140414
  Serious: Yes (Life-Threatening, Hospitalization)
  Sender: FDA-Public Use
  Company Number: None

PATIENT
  Age: 55 Year
  Sex: Female
  Weight: 85.4 kg

DRUGS (18)
  1. COUMADIN [Suspect]
     Indication: PULMONARY EMBOLISM
     Dosage: 2.5 MG   DAILY  PO?RECENT
     Route: 048
  2. FOLIC ACID [Concomitant]
  3. PROVENTIL [Concomitant]
  4. NORVASC [Concomitant]
  5. OSCAL [Concomitant]
  6. CLONIDINE [Concomitant]
  7. PROCRIT [Concomitant]
  8. FENTANYL PATCH [Concomitant]
  9. LEVAQUIN [Concomitant]
  10. IMODIUM [Concomitant]
  11. LORAZEPAM [Concomitant]
  12. MEVACOR [Concomitant]
  13. BORTEZOMIB [Concomitant]
  14. LIPOSOMAL DOXORUBICIN [Concomitant]
  15. DECADRON [Concomitant]
  16. OXYCODONE [Concomitant]
  17. COMPAZINE [Concomitant]
  18. ZOLOFT [Concomitant]

REACTIONS (2)
  - Haematemesis [None]
  - Anastomotic ulcer haemorrhage [None]
